FAERS Safety Report 10683556 (Version 1)
Quarter: 2014Q4

REPORT INFORMATION
  Report Type: Spontaneous
  Country: NL (occurrence: NL)
  Receive Date: 20141230
  Receipt Date: 20141230
  Transmission Date: 20150529
  Serious: Yes (Other)
  Sender: FDA-Public Use
  Company Number: NL-ABBVIE-14P-114-1327184-00

PATIENT
  Sex: Male

DRUGS (11)
  1. DEPAKINE [Suspect]
     Active Substance: VALPROATE SODIUM
     Dosage: GASTRO-RESISTANT TABLET
     Route: 048
     Dates: start: 20141216
  2. PYRIDOXINI HYDROCHLORIDUM [Concomitant]
     Indication: PRODUCT USED FOR UNKNOWN INDICATION
  3. DIPHANTOINE Z [Concomitant]
     Indication: PRODUCT USED FOR UNKNOWN INDICATION
  4. DEPAKINE [Suspect]
     Active Substance: VALPROATE SODIUM
     Dosage: GASTRO-RESISTANT TABLET
     Route: 048
     Dates: start: 2013, end: 2013
  5. DEPAKINE [Suspect]
     Active Substance: VALPROATE SODIUM
     Indication: EPILEPSY
     Dosage: TABLET
     Route: 048
     Dates: start: 1986
  6. DEPAKINE [Suspect]
     Active Substance: VALPROATE SODIUM
     Dosage: GASTRO-RESISTANT TABLET
     Route: 048
  7. ASCORBIC ACID/CALCIUM PANTOTHENATE/FOLIC ACID/NICOTINAMIDE [Concomitant]
     Indication: PRODUCT USED FOR UNKNOWN INDICATION
  8. DEPAKINE [Suspect]
     Active Substance: VALPROATE SODIUM
     Dosage: GASTRO-RESISTANT TABLET
     Route: 048
     Dates: start: 1986
  9. DEPAKINE [Suspect]
     Active Substance: VALPROATE SODIUM
     Dosage: GASTRO-RESISTANT TABLET
     Route: 048
     Dates: start: 1986
  10. VALERIAN EXTRACT [Concomitant]
     Active Substance: VALERIAN EXTRACT
     Indication: PRODUCT USED FOR UNKNOWN INDICATION
  11. FENYTOIN [Concomitant]
     Active Substance: PHENYTOIN
     Indication: PRODUCT USED FOR UNKNOWN INDICATION

REACTIONS (3)
  - Drug level decreased [Not Recovered/Not Resolved]
  - Epilepsy [Recovered/Resolved]
  - Fatigue [Recovered/Resolved]

NARRATIVE: CASE EVENT DATE: 2014
